FAERS Safety Report 21996242 (Version 1)
Quarter: 2023Q1

REPORT INFORMATION
  Report Type: Spontaneous
  Country: CH (occurrence: CH)
  Receive Date: 20230215
  Receipt Date: 20230215
  Transmission Date: 20230418
  Serious: Yes (Death, Other)
  Sender: FDA-Public Use
  Company Number: CH-AMGEN-CHESP2023022883

PATIENT

DRUGS (1)
  1. CARFILZOMIB [Suspect]
     Active Substance: CARFILZOMIB
     Indication: Plasma cell myeloma refractory
     Dosage: 15-27 MG/M2, Q2WK
     Route: 065

REACTIONS (12)
  - Death [Fatal]
  - Coronavirus infection [Unknown]
  - Cardiotoxicity [Unknown]
  - Pneumonia [Unknown]
  - Pyrexia [Unknown]
  - Fatigue [Unknown]
  - Renal failure [Unknown]
  - Anaemia [Unknown]
  - Leukopenia [Unknown]
  - Thrombocytopenia [Unknown]
  - Neutropenia [Unknown]
  - Therapy non-responder [Unknown]
